FAERS Safety Report 4499164-3 (Version None)
Quarter: 2004Q4

REPORT INFORMATION
  Report Type: 
  Country: None (occurrence: None)
  Receive Date: 20041111
  Receipt Date: 20041102
  Transmission Date: 20050328
  Serious: Yes (Hospitalization)
  Sender: FDA-Public Use
  Company Number: FR-ROCHE-385107

PATIENT
  Age: 33 Year
  Sex: Male

DRUGS (4)
  1. NAPROSYN [Suspect]
     Route: 048
     Dates: start: 20040929, end: 20041001
  2. VOLTAREN [Suspect]
     Dosage: ROUTE: LOCAL (SKIN, NAIL AND WOUND). FORM: EMULGEL
     Route: 050
     Dates: start: 20040929, end: 20041001
  3. LUMIRELAX [Concomitant]
  4. DIALGIREX [Concomitant]

REACTIONS (3)
  - BACK PAIN [None]
  - PROTEINURIA [None]
  - RENAL FAILURE ACUTE [None]
